FAERS Safety Report 21863244 (Version 1)
Quarter: 2023Q1

REPORT INFORMATION
  Report Type: Report from Study
  Country: US (occurrence: US)
  Receive Date: 20230115
  Receipt Date: 20230115
  Transmission Date: 20230418
  Serious: Yes (Other)
  Sender: FDA-Public Use
  Company Number: US-ABBVIE-4267986

PATIENT
  Age: 85 Year
  Sex: Male

DRUGS (1)
  1. VENCLEXTA [Suspect]
     Active Substance: VENETOCLAX
     Indication: Myelodysplastic syndrome
     Route: 048
     Dates: start: 20230102

REACTIONS (4)
  - Haemoglobin abnormal [Unknown]
  - Sciatica [Unknown]
  - Pain in extremity [Unknown]
  - Dizziness [Unknown]

NARRATIVE: CASE EVENT DATE: 20230105
